FAERS Safety Report 8044146-8 (Version None)
Quarter: 2012Q1

REPORT INFORMATION
  Report Type: 
  Country: None (occurrence: None)
  Receive Date: 20120113
  Receipt Date: 20120113
  Transmission Date: 20120608
  Serious: Yes (Hospitalization)
  Sender: FDA-Public Use
  Company Number: PHHO2011JP05448

PATIENT
  Sex: Male
  Weight: 62 kg

DRUGS (6)
  1. ALISKIREN / HCTZ [Suspect]
     Indication: HYPERTENSION
     Dosage: CODE NOT BROKEN
     Route: 048
     Dates: start: 20101201, end: 20110221
  2. CLOBETASOL PROPIONATE [Concomitant]
  3. TIGASON [Concomitant]
  4. METHADERM [Concomitant]
  5. OLMESARTAN MEDOXOMIL [Concomitant]
  6. BASEN [Concomitant]

REACTIONS (1)
  - INTERSTITIAL LUNG DISEASE [None]
